FAERS Safety Report 10390092 (Version 2)
Quarter: 2015Q2

REPORT INFORMATION
  Report Type: Report from Study
  Country: TR (occurrence: TR)
  Receive Date: 20140818
  Receipt Date: 20150428
  Transmission Date: 20150821
  Serious: Yes (Hospitalization, Congenital Anomaly)
  Sender: FDA-Public Use
  Company Number: TR-NOVOPROD-419043

PATIENT
  Sex: Male
  Weight: 3 kg

DRUGS (3)
  1. ELEVIT                             /01730301/ [Concomitant]
     Indication: VITAMIN SUPPLEMENTATION
     Dosage: 1 X 1
     Route: 064
     Dates: start: 20140411, end: 20140609
  2. ACTRAPID [Suspect]
     Active Substance: INSULIN HUMAN
     Indication: GESTATIONAL DIABETES
     Dosage: 2 U, QD
     Route: 064
     Dates: start: 20140411, end: 20140609
  3. MAGVITAL [Concomitant]
     Indication: MINERAL SUPPLEMENTATION
     Dosage: 1 X 1
     Route: 064
     Dates: start: 20140411, end: 20140609

REACTIONS (3)
  - Congenital renal disorder [Recovered/Resolved]
  - Hypoglycaemia neonatal [Recovered/Resolved]
  - Foetal exposure during pregnancy [Recovered/Resolved]

NARRATIVE: CASE EVENT DATE: 20140411
